FAERS Safety Report 10020889 (Version 1)
Quarter: 2014Q1

REPORT INFORMATION
  Report Type: Spontaneous
  Country: US (occurrence: US)
  Receive Date: 20140319
  Receipt Date: 20140319
  Transmission Date: 20141002
  Serious: No
  Sender: FDA-Public Use
  Company Number: US-JNJFOC-20140303692

PATIENT
  Sex: Male
  Weight: 107.5 kg

DRUGS (8)
  1. INVEGA SUSTENNA [Suspect]
     Indication: PRODUCT USED FOR UNKNOWN INDICATION
     Route: 030
  2. AMLODIPINE [Concomitant]
     Route: 065
  3. HCTZ [Concomitant]
     Route: 065
  4. LABETALOL [Concomitant]
     Route: 065
  5. SIMVASTATIN [Concomitant]
     Route: 065
  6. TOPIRAMATE [Concomitant]
     Route: 065
  7. LEVOTHYROXINE [Concomitant]
     Route: 065
  8. VENLAFAXINE [Concomitant]
     Route: 065

REACTIONS (1)
  - Drug ineffective [Unknown]
